FAERS Safety Report 8905557 (Version 1)
Quarter: 2012Q4

REPORT INFORMATION
  Report Type: 
  Country: US (occurrence: US)
  Receive Date: 20121113
  Receipt Date: 20121113
  Transmission Date: 20130627
  Serious: Yes (Death)
  Sender: FDA-Public Use
  Company Number: US-PFIZER INC-2012279672

PATIENT
  Age: 52 Year
  Sex: Male

DRUGS (1)
  1. SUTENT [Suspect]
     Indication: SARCOMA
     Dosage: 37.5 mg, UNK

REACTIONS (2)
  - Second primary malignancy [Fatal]
  - Renal cancer [Fatal]
